FAERS Safety Report 16263264 (Version 3)
Quarter: 2020Q2

REPORT INFORMATION
  Report Type: Spontaneous
  Country: US (occurrence: US)
  Receive Date: 20190502
  Receipt Date: 20200414
  Transmission Date: 20200713
  Serious: No
  Sender: FDA-Public Use
  Company Number: US-JNJFOC-20190416058

PATIENT
  Sex: Female
  Weight: 79.45 kg

DRUGS (3)
  1. METOPROLOL. [Concomitant]
     Active Substance: METOPROLOL
     Indication: HEART RATE ABNORMAL
     Route: 065
     Dates: start: 2009
  2. METFORMIN [Concomitant]
     Active Substance: METFORMIN HYDROCHLORIDE
     Indication: DIABETES MELLITUS
     Route: 065
     Dates: start: 2009
  3. XARELTO [Suspect]
     Active Substance: RIVAROXABAN
     Indication: THROMBOSIS
     Route: 048
     Dates: start: 20150701

REACTIONS (4)
  - Hot flush [Not Recovered/Not Resolved]
  - Product packaging quantity issue [Unknown]
  - Burning sensation [Not Recovered/Not Resolved]
  - Peripheral coldness [Not Recovered/Not Resolved]

NARRATIVE: CASE EVENT DATE: 2018
